FAERS Safety Report 18044231 (Version 1)
Quarter: 2020Q3

REPORT INFORMATION
  Report Type: Spontaneous
  Country: BE (occurrence: BE)
  Receive Date: 20200720
  Receipt Date: 20200720
  Transmission Date: 20201103
  Serious: Yes (Other)
  Sender: FDA-Public Use
  Company Number: BE-BAUSCH-BL-2020-019893

PATIENT

DRUGS (6)
  1. TRAFLOXAL [Suspect]
     Active Substance: OFLOXACIN
     Indication: PRODUCT USED FOR UNKNOWN INDICATION
     Route: 065
  2. MONOFREE DEXAMETHASON [Suspect]
     Active Substance: DEXAMETHASONE SODIUM PHOSPHATE
     Dosage: 2 DROPS/DAY THE FOURTH MONTH
     Route: 047
  3. MONOFREE DEXAMETHASON [Suspect]
     Active Substance: DEXAMETHASONE SODIUM PHOSPHATE
     Indication: PRODUCT USED FOR UNKNOWN INDICATION
     Dosage: 6 DROP/DAY THE FIRST MONTH
     Route: 047
  4. MONOFREE DEXAMETHASON [Suspect]
     Active Substance: DEXAMETHASONE SODIUM PHOSPHATE
     Dosage: 4 DROPS/DAY THE SECOND MONTH
     Route: 047
  5. MONOFREE DEXAMETHASON [Suspect]
     Active Substance: DEXAMETHASONE SODIUM PHOSPHATE
     Dosage: 1 DROP/DAY THE FIFTH MONTH
     Route: 047
  6. MONOFREE DEXAMETHASON [Suspect]
     Active Substance: DEXAMETHASONE SODIUM PHOSPHATE
     Dosage: 3 DROP/DAY THE THIRD MONTH
     Route: 047

REACTIONS (3)
  - Product prescribing issue [Unknown]
  - Corneal graft rejection [Unknown]
  - Macular oedema [Unknown]
